FAERS Safety Report 10485901 (Version 2)
Quarter: 2014Q4

REPORT INFORMATION
  Report Type: Spontaneous
  Country: IT (occurrence: IT)
  Receive Date: 20141001
  Receipt Date: 20141028
  Transmission Date: 20150528
  Serious: Yes (Other)
  Sender: FDA-Public Use
  Company Number: IT-ACCORD-026194

PATIENT
  Age: 77 Year
  Sex: Female

DRUGS (9)
  1. DIBASE [Concomitant]
     Active Substance: CHOLECALCIFEROL
     Dosage: ^10,000 IU / ML ORAL DROPS, SOLUTION^
  2. LANSOPRAZOLE. [Concomitant]
     Active Substance: LANSOPRAZOLE
     Route: 048
  3. SIMVASTATIN. [Concomitant]
     Active Substance: SIMVASTATIN
  4. SERTRALINE [Concomitant]
     Active Substance: SERTRALINE HYDROCHLORIDE
  5. EUTIROX [Concomitant]
     Active Substance: LEVOTHYROXINE SODIUM
     Dosage: ^25 MICROGRAMS TABLETS^ 50 TABLETS
     Route: 048
  6. AMLODIPINE [Suspect]
     Active Substance: AMLODIPINE BESYLATE
     Indication: HYPERTENSION
     Route: 048
     Dates: start: 20140911, end: 20140914
  7. BISOPROLOL [Concomitant]
     Active Substance: BISOPROLOL
  8. TRIAZOLAM. [Concomitant]
     Active Substance: TRIAZOLAM
  9. CARDIOASPIRIN [Concomitant]
     Active Substance: ASPIRIN
     Dosage: ^100 MG TABLETS GASTRO^ 30 TABS
     Route: 048

REACTIONS (4)
  - Abdominal pain upper [Recovered/Resolved]
  - Asthenia [Recovered/Resolved]
  - Headache [Recovered/Resolved]
  - Drug intolerance [Unknown]

NARRATIVE: CASE EVENT DATE: 20140914
